FAERS Safety Report 18070552 (Version 2)
Quarter: 2020Q3

REPORT INFORMATION
  Report Type: Spontaneous
  Country: CA (occurrence: CA)
  Receive Date: 20200727
  Receipt Date: 20200928
  Transmission Date: 20201103
  Serious: Yes (Other)
  Sender: FDA-Public Use
  Company Number: CA-GLAXOSMITHKLINE-CA2020GSK142738

PATIENT
  Age: 63 Year
  Sex: Female
  Weight: 60.32 kg

DRUGS (1)
  1. BUPROPION. [Suspect]
     Active Substance: BUPROPION
     Indication: DEPRESSION
     Dosage: 300 MG, 1D
     Route: 048

REACTIONS (5)
  - Lethargy [Recovered/Resolved]
  - Somnolence [Recovered/Resolved]
  - Depressed mood [Recovered/Resolved]
  - Flat affect [Recovered/Resolved]
  - Drug ineffective [Recovered/Resolved]
